FAERS Safety Report 8597403-0 (Version None)
Quarter: 2012Q3

REPORT INFORMATION
  Report Type: 
  Country: None (occurrence: None)
  Receive Date: 20120801
  Receipt Date: 20120717
  Transmission Date: 20120928
  Serious: Yes (Death)
  Sender: FDA-Public Use
  Company Number: APL-2012-00115

PATIENT
  Age: 53 Year
  Sex: Female

DRUGS (4)
  1. FENTANYL [Concomitant]
  2. OXYCODONE HCL [Concomitant]
  3. FENTANYL [Suspect]
     Indication: PAIN
     Dosage: 100;200 UG, PM
  4. FENTANYL [Concomitant]

REACTIONS (1)
  - DEATH [None]
